FAERS Safety Report 7220480-6 (Version None)
Quarter: 2011Q1

REPORT INFORMATION
  Report Type: 
  Country: None (occurrence: None)
  Receive Date: 20110111
  Receipt Date: 20110104
  Transmission Date: 20110831
  Serious: Yes (Other)
  Sender: FDA-Public Use
  Company Number: US-US-EMD SERONO, INC.-7034593

PATIENT
  Sex: Male

DRUGS (4)
  1. NOVANTRONE [Suspect]
     Indication: PROSTATE CANCER
     Dates: start: 20080630
  2. NEULASTA [Suspect]
     Indication: PROSTATE CANCER
     Route: 058
     Dates: start: 20080701
  3. PREDNISONE [Suspect]
     Indication: PROSTATE CANCER
     Route: 048
     Dates: start: 20080630
  4. IXABEPILONE [Suspect]
     Indication: PROSTATE CANCER
     Dates: start: 20080630

REACTIONS (1)
  - HAEMOGLOBIN DECREASED [None]
